FAERS Safety Report 9026621 (Version 1)
Quarter: 2013Q1

REPORT INFORMATION
  Report Type: Spontaneous
  Country: US (occurrence: None)
  Receive Date: 20130114
  Receipt Date: 20130114
  Transmission Date: 20140127
  Serious: Yes (Hospitalization)
  Sender: FDA-Public Use
  Company Number: None

PATIENT
  Age: 82 Year
  Sex: Female
  Weight: 74.84 kg

DRUGS (6)
  1. PRADAXA, - 150 MG [Suspect]
     Indication: CEREBROVASCULAR ACCIDENT PROPHYLAXIS
     Dosage: 1 EVERY 12 HOURS
  2. PRADAXA, - 150 MG [Suspect]
     Indication: HYPERTENSION
     Dosage: 1 EVERY 12 HOURS
  3. METOPRILOL SUCC ER [Concomitant]
  4. VITAMIN B12 [Concomitant]
  5. DIOVAN [Concomitant]
  6. 81 MG BABY ASPIRIN [Concomitant]

REACTIONS (5)
  - Fall [None]
  - Haemorrhage [None]
  - Facial bones fracture [None]
  - Suture insertion [None]
  - Arthralgia [None]
